FAERS Safety Report 5367656-0 (Version None)
Quarter: 2007Q2

REPORT INFORMATION
  Report Type: 
  Country: None (occurrence: None)
  Receive Date: 20070622
  Receipt Date: 20070501
  Transmission Date: 20071010
  Serious: No
  Sender: FDA-Public Use
  Company Number: US-ASTRAZENECA-2007UW02654

PATIENT
  Age: 9 Month
  Sex: Female
  Weight: 7.7 kg

DRUGS (3)
  1. PULMICORT RESPULES [Suspect]
     Indication: GASTROOESOPHAGEAL REFLUX DISEASE
     Dosage: 0.25 MG 30 COUNT
     Route: 055
  2. PREVACID [Concomitant]
  3. ZOPANEX [Concomitant]

REACTIONS (2)
  - PHARMACEUTICAL PRODUCT COMPLAINT [None]
  - VOMITING [None]
